FAERS Safety Report 20917497 (Version 6)
Quarter: 2023Q1

REPORT INFORMATION
  Report Type: Report from Study
  Country: US (occurrence: US)
  Receive Date: 20220606
  Receipt Date: 20230220
  Transmission Date: 20230418
  Serious: No
  Sender: FDA-Public Use
  Company Number: US-NOVARTISTESTPH-NVSC2022US128871

PATIENT
  Sex: Female

DRUGS (1)
  1. KESIMPTA [Suspect]
     Active Substance: OFATUMUMAB
     Indication: Multiple sclerosis
     Dosage: UNK UNK, OTHER (20 MG AT WEEKS 0,1 AND 2)
     Route: 058
     Dates: start: 20220513

REACTIONS (3)
  - Pain [Unknown]
  - Confusional state [Unknown]
  - Incorrect dose administered [Unknown]
